FAERS Safety Report 4759901-7 (Version None)
Quarter: 2005Q3

REPORT INFORMATION
  Report Type: 
  Country: None (occurrence: None)
  Receive Date: 20050831
  Receipt Date: 20050822
  Transmission Date: 20060218
  Serious: No
  Sender: FDA-Public Use
  Company Number: USA050597079

PATIENT
  Age: 39 Year
  Sex: Female
  Weight: 55 kg

DRUGS (6)
  1. CYMBALTA [Suspect]
     Indication: MAJOR DEPRESSION
     Dosage: 90 MG DAY
     Dates: start: 20040813
  2. LITHIUM CARBONATE [Concomitant]
  3. SEROQUEL [Concomitant]
  4. ABILIFY [Concomitant]
  5. GEODON [Concomitant]
  6. XANAX [Concomitant]

REACTIONS (6)
  - ANOREXIA [None]
  - ASPARTATE AMINOTRANSFERASE INCREASED [None]
  - FATIGUE [None]
  - NAUSEA [None]
  - PALLOR [None]
  - VOMITING [None]
